FAERS Safety Report 6835706-8 (Version None)
Quarter: 2010Q3

REPORT INFORMATION
  Report Type: 
  Country: None (occurrence: None)
  Receive Date: 20100712
  Receipt Date: 20100712
  Transmission Date: 20110219
  Serious: Yes (Life-Threatening, Hospitalization)
  Sender: FDA-Public Use
  Company Number: None

PATIENT
  Age: 68 Year
  Sex: Female
  Weight: 126 kg

DRUGS (1)
  1. TIKOSYN [Suspect]
     Indication: SINUS RHYTHM
     Dosage: 500 MCG Q12H PO
     Route: 048
     Dates: start: 20100708, end: 20100709

REACTIONS (10)
  - ABDOMINAL DISTENSION [None]
  - ATRIAL FIBRILLATION [None]
  - CARDIAC ARREST [None]
  - CARDIO-RESPIRATORY ARREST [None]
  - CHEST DISCOMFORT [None]
  - DYSPNOEA [None]
  - FEELING ABNORMAL [None]
  - HYPERVENTILATION [None]
  - UNRESPONSIVE TO STIMULI [None]
  - VENTRICULAR TACHYCARDIA [None]
